FAERS Safety Report 8530119-5 (Version None)
Quarter: 2012Q3

REPORT INFORMATION
  Report Type: 
  Country: None (occurrence: None)
  Receive Date: 20120723
  Receipt Date: 20120718
  Transmission Date: 20120928
  Serious: Yes (Other)
  Sender: FDA-Public Use
  Company Number: PHHY2012BR053370

PATIENT
  Sex: Male

DRUGS (10)
  1. TRILEPTAL [Suspect]
     Indication: CONVULSION
     Dosage: 3 TABLETS A DAY
     Route: 048
  2. FINASTERIDE [Concomitant]
     Dosage: 1 TABLET A DAY
     Route: 048
  3. MOTILIUM [Concomitant]
     Indication: GASTRIC DISORDER
     Dosage: 2 TABLETS A DAY
     Route: 048
  4. ARADOIS H [Concomitant]
     Indication: HYPERTENSION
     Dosage: 1 TABLET A DAY
     Route: 048
  5. LEVOTHYROXINE SODIUM [Concomitant]
     Indication: THYROID PAIN
     Dosage: 1 TABLET A DAY
  6. SOLIFENACIN SUCCINATE [Concomitant]
     Indication: MICTURITION DISORDER
     Dosage: 1 TABLET A DAY
  7. SIMVASTATIN [Concomitant]
     Indication: BLOOD CHOLESTEROL INCREASED
     Dosage: 1 TABLET A DAY
     Route: 048
  8. PRAMIPEXOLE DIHYDROCHLORIDE [Concomitant]
     Indication: TREMOR
     Dosage: 2 TABLETS A DAY
     Dates: start: 20110101
  9. DONEPEZIL HCL [Concomitant]
     Indication: TREMOR
     Dosage: 1 TABLET AT NIGHT
     Dates: start: 20110101
  10. AMLODIPINE BESYLATE [Concomitant]
     Indication: HYPERTENSION
     Dosage: 1 TABLET A DAY
     Route: 048

REACTIONS (1)
  - BLADDER CANCER [None]
